FAERS Safety Report 9381322 (Version 3)
Quarter: 2014Q1

REPORT INFORMATION
  Report Type: Report from Study
  Country: US (occurrence: US)
  Receive Date: 20130703
  Receipt Date: 20140307
  Transmission Date: 20141002
  Serious: Yes (Hospitalization, Other)
  Sender: FDA-Public Use
  Company Number: US-ALEXION-A201301508

PATIENT
  Age: 63 Year
  Sex: Male

DRUGS (1)
  1. SOLIRIS [Suspect]
     Indication: PAROXYSMAL NOCTURNAL HAEMOGLOBINURIA
     Dosage: 900 MG, Q2W
     Route: 042
     Dates: start: 20071112

REACTIONS (7)
  - Hip arthroplasty [Unknown]
  - Hip arthroplasty [Unknown]
  - Haemoglobin decreased [Recovering/Resolving]
  - Pain [Unknown]
  - Diverticulitis [Unknown]
  - Asthenia [Unknown]
  - Abdominal pain [Recovering/Resolving]
